FAERS Safety Report 10034948 (Version 1)
Quarter: 2014Q1

REPORT INFORMATION
  Report Type: Spontaneous
  Country: US (occurrence: None)
  Receive Date: 20140321
  Receipt Date: 20140321
  Transmission Date: 20141002
  Serious: Yes (Hospitalization)
  Sender: FDA-Public Use
  Company Number: 14AE011

PATIENT
  Age: 70 Year
  Sex: Female

DRUGS (1)
  1. EQUATE BISACODYL 5 MG ENTERIC COATED SUGAR COATED PICK TABLETS [Suspect]
     Indication: CONSTIPATION
     Dosage: 2 BY MOUTH/ONCE
     Route: 048
     Dates: start: 20140226

REACTIONS (7)
  - Dyspepsia [None]
  - Heart rate decreased [None]
  - Diarrhoea [None]
  - Nausea [None]
  - Asthenia [None]
  - Hyperhidrosis [None]
  - Vomiting [None]
